FAERS Safety Report 5393710-3 (Version None)
Quarter: 2007Q3

REPORT INFORMATION
  Report Type: 
  Country: None (occurrence: None)
  Receive Date: 20070723
  Receipt Date: 20070710
  Transmission Date: 20080115
  Serious: Yes (Hospitalization)
  Sender: FDA-Public Use
  Company Number: DE-AMGEN-UK233480

PATIENT
  Sex: Male

DRUGS (4)
  1. CINACALCET - BLINDED [Suspect]
     Indication: HYPERPARATHYROIDISM SECONDARY
     Route: 048
     Dates: start: 20070213
  2. ASPIRIN [Concomitant]
     Route: 065
  3. HEPARIN [Concomitant]
     Route: 058
  4. PHENPROCOUMON [Concomitant]
     Route: 065

REACTIONS (1)
  - GASTRIC ULCER [None]
